FAERS Safety Report 17172937 (Version 3)
Quarter: 2020Q1

REPORT INFORMATION
  Report Type: Spontaneous
  Country: PL (occurrence: PL)
  Receive Date: 20191219
  Receipt Date: 20200302
  Transmission Date: 20200409
  Serious: Yes (Other)
  Sender: FDA-Public Use
  Company Number: PL-TEVA-2019-PL-1155877

PATIENT
  Age: 29 Year
  Sex: Female

DRUGS (5)
  1. OXIS [Concomitant]
     Active Substance: FORMOTEROL FUMARATE
     Indication: ASTHMA
     Route: 055
  2. METAFORAMAX [Concomitant]
     Indication: POLYCYSTIC OVARIES
  3. SEASONIQUE [Suspect]
     Active Substance: ETHINYL ESTRADIOL\LEVONORGESTREL
     Indication: HORMONAL CONTRACEPTION
     Route: 065
     Dates: start: 2015, end: 2019
  4. ALVESCO [Concomitant]
     Active Substance: CICLESONIDE
     Indication: ASTHMA
     Route: 055
  5. BROMERGON [Concomitant]
     Active Substance: BROMOCRIPTINE MESYLATE
     Indication: POLYCYSTIC OVARIES

REACTIONS (2)
  - Hepatic neoplasm [Recovered/Resolved]
  - Focal nodular hyperplasia [Recovered/Resolved]
